FAERS Safety Report 11627623 (Version 1)
Quarter: 2015Q4

REPORT INFORMATION
  Report Type: Spontaneous
  Country: US (occurrence: US)
  Receive Date: 20151014
  Receipt Date: 20151014
  Transmission Date: 20160304
  Serious: Yes (Death)
  Sender: FDA-Public Use
  Company Number: US-JNJFOC-20150927536

PATIENT
  Sex: Female

DRUGS (2)
  1. TUCKS HEMORRHOIDAL [Suspect]
     Active Substance: MINERAL OIL\PRAMOXINE HYDROCHLORIDE\ZINC OXIDE
     Indication: ROUTINE HEALTH MAINTENANCE
     Dosage: JUST A TINY DAB, FOR OVER 30 YEARS
     Route: 061
  2. TUCKS HEMORRHOIDAL [Suspect]
     Active Substance: MINERAL OIL\PRAMOXINE HYDROCHLORIDE\ZINC OXIDE
     Indication: PROPHYLAXIS
     Dosage: JUST A TINY DAB, FOR OVER 30 YEARS
     Route: 061

REACTIONS (2)
  - Dementia Alzheimer^s type [Fatal]
  - Incorrect drug administration duration [Fatal]
